FAERS Safety Report 21612209 (Version 1)
Quarter: 2022Q4

REPORT INFORMATION
  Report Type: Report from Study
  Country: US (occurrence: US)
  Receive Date: 20221118
  Receipt Date: 20221118
  Transmission Date: 20230112
  Serious: Yes (Other)
  Sender: FDA-Public Use
  Company Number: US-ABBVIE-22K-163-4338651-00

PATIENT
  Age: 42 Year
  Sex: Female
  Weight: 53.07 kg

DRUGS (7)
  1. HUMIRA [Suspect]
     Active Substance: ADALIMUMAB
     Indication: Uveitis
     Dosage: CITRATE FREE. FROM STRENGTH: 40 MG
     Route: 058
     Dates: start: 2021
  2. HUMIRA [Suspect]
     Active Substance: ADALIMUMAB
     Indication: Visual impairment
  3. PREDNISONE [Suspect]
     Active Substance: PREDNISONE
     Indication: Blood pressure measurement
     Route: 065
  4. LISINOPRIL [Suspect]
     Active Substance: LISINOPRIL
     Indication: Blood pressure measurement
     Route: 065
  5. AJOVY [Concomitant]
     Active Substance: FREMANEZUMAB-VFRM
     Indication: Migraine
  6. AZATHIOPRINE [Concomitant]
     Active Substance: AZATHIOPRINE
     Indication: Product used for unknown indication
     Dosage: 15 MILLIGRAM
  7. CARVEDILOL [Concomitant]
     Active Substance: CARVEDILOL
     Indication: Blood pressure measurement

REACTIONS (5)
  - Cataract [Recovered/Resolved]
  - Weight increased [Unknown]
  - Hypotension [Unknown]
  - Hypertension [Recovering/Resolving]
  - Unevaluable event [Unknown]

NARRATIVE: CASE EVENT DATE: 20220301
